FAERS Safety Report 25706430 (Version 8)
Quarter: 2025Q4

REPORT INFORMATION
  Report Type: Report from Study
  Country: CO (occurrence: CO)
  Receive Date: 20250820
  Receipt Date: 20251028
  Transmission Date: 20260118
  Serious: Yes (Hospitalization, Other)
  Sender: NOVARTIS
  Company Number: CO-002147023-NVSC2025CO130425

PATIENT
  Age: 34 Year
  Sex: Female
  Weight: 67 kg

DRUGS (9)
  1. COSENTYX [Suspect]
     Active Substance: SECUKINUMAB
     Indication: Psoriatic arthropathy
     Dosage: 150 MG, QMO
     Route: 058
     Dates: start: 20240723
  2. COSENTYX [Suspect]
     Active Substance: SECUKINUMAB
     Dosage: 300 MG
     Route: 058
     Dates: start: 20250126
  3. COSENTYX [Suspect]
     Active Substance: SECUKINUMAB
     Dosage: 300 MG, QMO (FOR 6 MONTHS)
     Route: 058
     Dates: start: 20250714
  4. COSENTYX [Suspect]
     Active Substance: SECUKINUMAB
     Dosage: 300 MG, QMO (FOR 6 MONTHS)
     Route: 058
     Dates: start: 20250814
  5. COSENTYX [Suspect]
     Active Substance: SECUKINUMAB
     Dosage: 300 MG, QMO
     Route: 058
     Dates: start: 20251015
  6. PREGABALIN [Suspect]
     Active Substance: PREGABALIN
     Indication: Pain
     Dosage: 75 MG, QD
     Route: 048
     Dates: start: 20250805
  7. LOSARTAN [Concomitant]
     Active Substance: LOSARTAN
     Indication: Product used for unknown indication
     Dosage: 50 MG, QD
     Route: 065
  8. HYDROCORTISONE [Concomitant]
     Active Substance: HYDROCORTISONE
     Indication: Antiallergic therapy
     Dosage: 100 MG
     Route: 065
  9. PREDNISOLONE [Concomitant]
     Active Substance: PREDNISOLONE
     Indication: Product used for unknown indication
     Dosage: 30 MG, QD
     Route: 065

REACTIONS (20)
  - Renal disorder [Recovered/Resolved]
  - Inflammation [Not Recovered/Not Resolved]
  - Vomiting [Recovered/Resolved]
  - Abdominal pain [Not Recovered/Not Resolved]
  - Pyrexia [Recovered/Resolved]
  - Back pain [Unknown]
  - Renal failure [Unknown]
  - Cough [Not Recovered/Not Resolved]
  - Pruritus [Not Recovered/Not Resolved]
  - Application site inflammation [Recovered/Resolved]
  - Application site inflammation [Unknown]
  - Application site pruritus [Unknown]
  - Drug hypersensitivity [Unknown]
  - Nausea [Not Recovered/Not Resolved]
  - Focal segmental glomerulosclerosis [Unknown]
  - Protein urine present [Unknown]
  - Tremor [Not Recovered/Not Resolved]
  - Accidental exposure to product [Unknown]
  - Drug effect less than expected [Unknown]
  - Device failure [Unknown]

NARRATIVE: CASE EVENT DATE: 20250915
